FAERS Safety Report 18684033 (Version 24)
Quarter: 2024Q4

REPORT INFORMATION
  Report Type: Spontaneous
  Country: US (occurrence: US)
  Receive Date: 20201230
  Receipt Date: 20241114
  Transmission Date: 20250115
  Serious: Yes (Other)
  Sender: PFIZER
  Company Number: US-PFIZER INC-2020513362

PATIENT
  Age: 42 Year
  Sex: Female

DRUGS (3)
  1. DEPO-ESTRADIOL [Suspect]
     Active Substance: ESTRADIOL CYPIONATE
     Dosage: UNK
  2. LIOTHYRONINE [Concomitant]
     Active Substance: LIOTHYRONINE
     Indication: Immune system disorder
     Dosage: 25 UG
  3. SYNTHROID [Concomitant]
     Active Substance: LEVOTHYROXINE SODIUM
     Indication: Immune system disorder
     Dosage: 88 UG

REACTIONS (8)
  - Autoimmune thyroiditis [Unknown]
  - Precancerous condition [Unknown]
  - Joint dislocation [Unknown]
  - Colon cancer [Unknown]
  - Granuloma annulare [Not Recovered/Not Resolved]
  - Malaise [Unknown]
  - Feeling abnormal [Unknown]
  - Breast mass [Unknown]

NARRATIVE: CASE EVENT DATE: 20010101
